FAERS Safety Report 4474614-7 (Version None)
Quarter: 2004Q4

REPORT INFORMATION
  Report Type: 
  Country: None (occurrence: None)
  Receive Date: 20041008
  Receipt Date: 20040921
  Transmission Date: 20050328
  Serious: Yes (Death)
  Sender: FDA-Public Use
  Company Number: EWC040940743

PATIENT
  Age: 25 Year
  Sex: Female

DRUGS (3)
  1. ZYPREXA [Suspect]
     Indication: BIPOLAR DISORDER
     Dosage: 20 MG DAY
     Dates: start: 20040601, end: 20040701
  2. OXCARBAZEPINE [Concomitant]
  3. QUETIAPINE [Concomitant]

REACTIONS (1)
  - DEATH [None]
